FAERS Safety Report 14730355 (Version 2)
Quarter: 2018Q2

REPORT INFORMATION
  Report Type: Report from Study
  Country: CN (occurrence: CN)
  Receive Date: 20180406
  Receipt Date: 20180410
  Transmission Date: 20180711
  Serious: Yes (Death, Hospitalization)
  Sender: FDA-Public Use
  Company Number: CN-AMGEN-CHNCT2017137571

PATIENT
  Age: 43 Year
  Sex: Male
  Weight: 80 kg

DRUGS (10)
  1. CARFILZOMIB [Suspect]
     Active Substance: CARFILZOMIB
     Indication: PLASMA CELL MYELOMA
     Dosage: 40 MG, PER CHEMO REGIM
     Route: 042
     Dates: start: 20170609
  2. LANSOPRAZOLE. [Concomitant]
     Active Substance: LANSOPRAZOLE
     Dosage: 30 MG, UNK
     Route: 042
     Dates: start: 20170909, end: 20170914
  3. SODIUM POLYSTYRENE SULFONATE. [Concomitant]
     Active Substance: SODIUM POLYSTYRENE SULFONATE
     Dosage: 15 G, UNK
     Route: 048
     Dates: start: 20170909, end: 20170912
  4. DEXAMETHASONE. [Suspect]
     Active Substance: DEXAMETHASONE
     Indication: PLASMA CELL MYELOMA
     Dosage: 20 MG, PER CHEMO REGIM
     Route: 042
     Dates: start: 20170609
  5. MIACALCIC [Concomitant]
     Active Substance: CALCITONIN SALMON
     Dosage: UNK
  6. GLUTATHIONE [Concomitant]
     Active Substance: GLUTATHIONE
     Dosage: 1.8 G, UNK
     Route: 042
     Dates: start: 20170909, end: 20170914
  7. TROPISETRON [Concomitant]
     Active Substance: TROPISETRON
     Dosage: 5 MG, UNK
     Route: 042
     Dates: start: 20170909, end: 20170914
  8. SODIUM BICARBONATE. [Concomitant]
     Active Substance: SODIUM BICARBONATE
     Dosage: 1 G, UNK
     Route: 048
     Dates: start: 20170813
  9. VALACICLOVIR HYDROCHLORIDE [Concomitant]
     Active Substance: VALACYCLOVIR HYDROCHLORIDE
     Dosage: 300 MG, UNK
     Route: 048
     Dates: start: 20170608, end: 20170909
  10. TORASEMIDE [Concomitant]
     Active Substance: TORSEMIDE
     Dosage: 20 MG, UNK
     Route: 042
     Dates: start: 20170908, end: 20170914

REACTIONS (2)
  - Acute kidney injury [Not Recovered/Not Resolved]
  - End stage renal disease [Fatal]

NARRATIVE: CASE EVENT DATE: 20170908
